FAERS Safety Report 7883219-7 (Version None)
Quarter: 2011Q4

REPORT INFORMATION
  Report Type: 
  Country: None (occurrence: None)
  Receive Date: 20111101
  Receipt Date: 20111101
  Transmission Date: 20120403
  Serious: No
  Sender: FDA-Public Use
  Company Number: None

PATIENT
  Age: 64 Year
  Sex: Male
  Weight: 75.5 kg

DRUGS (1)
  1. FLUOXETINE HCL [Suspect]
     Indication: DEPRESSION
     Dosage: 40 MG EVERY DAY PO
     Route: 048
     Dates: start: 20110915, end: 20111025

REACTIONS (3)
  - INSOMNIA [None]
  - DYSKINESIA [None]
  - SEROTONIN SYNDROME [None]
